FAERS Safety Report 19397078 (Version 1)
Quarter: 2021Q2

REPORT INFORMATION
  Report Type: Spontaneous
  Country: US (occurrence: US)
  Receive Date: 20210610
  Receipt Date: 20210610
  Transmission Date: 20210717
  Serious: Yes (Other)
  Sender: FDA-Public Use
  Company Number: US-JNJFOC-20210606180

PATIENT
  Age: 28 Year
  Sex: Male
  Weight: 75.82 kg

DRUGS (2)
  1. STELARA [Suspect]
     Active Substance: USTEKINUMAB
     Indication: COLITIS
     Route: 042
     Dates: start: 20210527
  2. PROBIOTICS NOS [Concomitant]
     Active Substance: PROBIOTICS NOS

REACTIONS (7)
  - Angioedema [Unknown]
  - Listeriosis [Unknown]
  - Product use in unapproved indication [Unknown]
  - Off label use [Unknown]
  - Seizure [Unknown]
  - Clostridium difficile infection [Unknown]
  - Oral herpes [Unknown]

NARRATIVE: CASE EVENT DATE: 20210527
